FAERS Safety Report 7237788-0 (Version None)
Quarter: 2011Q1

REPORT INFORMATION
  Report Type: 
  Country: None (occurrence: None)
  Receive Date: 20110121
  Receipt Date: 20110112
  Transmission Date: 20110831
  Serious: Yes (Life-Threatening, Hospitalization)
  Sender: FDA-Public Use
  Company Number: CA-ROCHE-753058

PATIENT
  Age: 29 Year
  Sex: Female
  Weight: 60 kg

DRUGS (1)
  1. AVASTIN [Suspect]
     Route: 042

REACTIONS (3)
  - CEREBRAL DISORDER [None]
  - COMA [None]
  - CEREBRAL HAEMORRHAGE [None]
